FAERS Safety Report 12730221 (Version 1)
Quarter: 2016Q3

REPORT INFORMATION
  Report Type: Spontaneous
  Country: US (occurrence: US)
  Receive Date: 20160909
  Receipt Date: 20160909
  Transmission Date: 20161109
  Serious: Yes (Death, Other)
  Sender: FDA-Public Use
  Company Number: US-TEVA-690951USA

PATIENT
  Age: 81 Year
  Sex: Female
  Weight: 61.29 kg

DRUGS (1)
  1. AMIKACIN SULFATE. [Suspect]
     Active Substance: AMIKACIN SULFATE
     Route: 065

REACTIONS (1)
  - Death [Fatal]

NARRATIVE: CASE EVENT DATE: 20160730
